FAERS Safety Report 7803678-5 (Version None)
Quarter: 2011Q4

REPORT INFORMATION
  Report Type: 
  Country: None (occurrence: None)
  Receive Date: 20111010
  Receipt Date: 20110930
  Transmission Date: 20120403
  Serious: Yes (Death, Hospitalization)
  Sender: FDA-Public Use
  Company Number: US-BIOGENIDEC-2010BI042235

PATIENT
  Sex: Female

DRUGS (1)
  1. AVONEX [Suspect]
     Indication: MULTIPLE SCLEROSIS
     Route: 030
     Dates: start: 20070925, end: 20110101

REACTIONS (5)
  - DYSPHAGIA [None]
  - ASPIRATION [None]
  - MULTIPLE SCLEROSIS [None]
  - LARYNGEAL CANCER [None]
  - FIBROMYALGIA [None]
